FAERS Safety Report 7154356-X (Version None)
Quarter: 2010Q4

REPORT INFORMATION
  Report Type: 
  Country: None (occurrence: None)
  Receive Date: 20101213
  Receipt Date: 20101203
  Transmission Date: 20110411
  Serious: Yes (Other)
  Sender: FDA-Public Use
  Company Number: BR-PFIZER INC-2010164586

PATIENT
  Age: 31 Year
  Sex: Female
  Weight: 54 kg

DRUGS (3)
  1. LYRICA [Suspect]
     Indication: BIPOLAR DISORDER
     Dosage: 75 MG, UNK
     Route: 048
     Dates: start: 20100901
  2. BROMAZEPAM [Concomitant]
     Dosage: UNK
     Dates: start: 20091201
  3. DRAMIN /BRA/ [Concomitant]
     Indication: NAUSEA
     Dosage: UNK
     Dates: start: 20091201

REACTIONS (3)
  - DRUG DEPENDENCE [None]
  - HEADACHE [None]
  - TREMOR [None]
